FAERS Safety Report 8170890-8 (Version None)
Quarter: 2012Q1

REPORT INFORMATION
  Report Type: 
  Country: None (occurrence: None)
  Receive Date: 20120104
  Receipt Date: 20111115
  Transmission Date: 20120608
  Serious: No
  Sender: FDA-Public Use
  Company Number: 2011HGS-002802

PATIENT
  Sex: Female

DRUGS (1)
  1. BENLYSTA [Suspect]
     Dosage: 10 MG/KG, INTRAVENOUS DRIP
     Route: 041

REACTIONS (1)
  - LIP SWELLING [None]
